FAERS Safety Report 7312477-2 (Version None)
Quarter: 2011Q1

REPORT INFORMATION
  Report Type: 
  Country: None (occurrence: None)
  Receive Date: 20110224
  Receipt Date: 20110218
  Transmission Date: 20110831
  Serious: Yes (Other)
  Sender: FDA-Public Use
  Company Number: BR-ROCHE-754816

PATIENT
  Sex: Female
  Weight: 80 kg

DRUGS (9)
  1. DAIVOBET [Suspect]
     Indication: PUSTULAR PSORIASIS
     Dosage: ROUTE: TOPIC. DOSE: (50 MCG+0.5MG)/G
     Route: 065
  2. OMEPRAZOLE [Concomitant]
  3. ARAVA [Suspect]
     Route: 065
     Dates: start: 20090101, end: 20110210
  4. TOCILIZUMAB [Suspect]
     Indication: POLYARTHRITIS
     Dosage: ROUTE: ENDOVENOUS; FORM: INFUSION
     Route: 042
     Dates: start: 20100205, end: 20100205
  5. RITUXIMAB [Suspect]
     Indication: RHEUMATOID ARTHRITIS
     Dosage: FORM: INFUSION
     Route: 065
     Dates: start: 20101220, end: 20110107
  6. REMICADE [Concomitant]
  7. PREDNISONE [Concomitant]
     Indication: PREMEDICATION
     Dates: start: 20110107, end: 20110107
  8. OS-CAL + D [Concomitant]
  9. ALLEGRA [Concomitant]
     Indication: PREMEDICATION
     Dates: start: 20110107, end: 20110110

REACTIONS (25)
  - NAUSEA [None]
  - ARTHRALGIA [None]
  - BONE PAIN [None]
  - ERYTHEMA [None]
  - HYPERHIDROSIS [None]
  - MUSCLE RIGIDITY [None]
  - JOINT RANGE OF MOTION DECREASED [None]
  - ARTHROPATHY [None]
  - HYPOAESTHESIA [None]
  - FATIGUE [None]
  - NERVOUSNESS [None]
  - LARYNGEAL OEDEMA [None]
  - NECK PAIN [None]
  - HEADACHE [None]
  - SKIN DISCOLOURATION [None]
  - ABDOMINAL PAIN UPPER [None]
  - INFLAMMATION [None]
  - DRUG INEFFECTIVE [None]
  - RENAL DISORDER [None]
  - PHARYNGEAL DISORDER [None]
  - HYPERSENSITIVITY [None]
  - DYSPNOEA [None]
  - ABASIA [None]
  - PAIN [None]
  - PUSTULAR PSORIASIS [None]
